FAERS Safety Report 10364173 (Version 1)
Quarter: 2014Q3

REPORT INFORMATION
  Report Type: Report from Study
  Country: US (occurrence: US)
  Receive Date: 20140806
  Receipt Date: 20140806
  Transmission Date: 20150326
  Serious: Yes (Other)
  Sender: FDA-Public Use
  Company Number: US-ROCHE-1445516

PATIENT
  Age: 51 Year
  Sex: Female
  Weight: 80.36 kg

DRUGS (3)
  1. INCIVEK [Suspect]
     Active Substance: TELAPREVIR
     Indication: HEPATITIS C
     Dosage: 2
     Route: 048
     Dates: start: 20130826, end: 20130926
  2. PEGASYS [Suspect]
     Active Substance: PEGINTERFERON ALFA-2A
     Indication: HEPATITIS C
     Route: 065
     Dates: start: 20130826, end: 20130926
  3. COPEGUS [Suspect]
     Active Substance: RIBAVIRIN
     Indication: HEPATITIS C
     Route: 048
     Dates: start: 20130826, end: 20130926

REACTIONS (3)
  - Asthenia [Unknown]
  - Depression [Unknown]
  - Visual impairment [Unknown]

NARRATIVE: CASE EVENT DATE: 20130916
